FAERS Safety Report 12070127 (Version 1)
Quarter: 2016Q1

REPORT INFORMATION
  Report Type: Spontaneous
  Country: JP (occurrence: JP)
  Receive Date: 20160211
  Receipt Date: 20160211
  Transmission Date: 20160526
  Serious: Yes (Other)
  Sender: FDA-Public Use
  Company Number: JP-JNJFOC-20160202793

PATIENT
  Sex: Female

DRUGS (1)
  1. RISPERDAL [Suspect]
     Active Substance: RISPERIDONE
     Indication: PRODUCT USED FOR UNKNOWN INDICATION
     Dosage: BEFORE SLEEP
     Route: 048

REACTIONS (4)
  - Product taste abnormal [Unknown]
  - Burning sensation [Unknown]
  - Insomnia [Unknown]
  - Fracture [Unknown]

NARRATIVE: CASE EVENT DATE: 2016
